FAERS Safety Report 23108608 (Version 10)
Quarter: 2024Q2

REPORT INFORMATION
  Report Type: Spontaneous
  Country: US (occurrence: US)
  Receive Date: 20231026
  Receipt Date: 20240501
  Transmission Date: 20240716
  Serious: No
  Sender: FDA-Public Use
  Company Number: US-PFIZER INC-PV202300168428

PATIENT
  Age: 14 Year
  Sex: Male
  Weight: 79.38 kg

DRUGS (2)
  1. GENOTROPIN [Suspect]
     Active Substance: SOMATROPIN
     Indication: Growth hormone deficiency
     Dosage: 2.4 MG
  2. GENOTROPIN [Suspect]
     Active Substance: SOMATROPIN
     Dosage: 2.2 MG TAKING ONCE A DAY, 6 TIMES A WEEK

REACTIONS (6)
  - Poor quality device used [Unknown]
  - Drug dose omission by device [Unknown]
  - Wrong technique in device usage process [Unknown]
  - Device use error [Unknown]
  - Incorrect dose administered [Unknown]
  - Device breakage [Unknown]
